FAERS Safety Report 8571977-8 (Version None)
Quarter: 2012Q3

REPORT INFORMATION
  Report Type: 
  Country: None (occurrence: None)
  Receive Date: 20120806
  Receipt Date: 20120730
  Transmission Date: 20120928
  Serious: Yes (Other)
  Sender: FDA-Public Use
  Company Number: FR-BAYER-2012-077573

PATIENT
  Sex: Female

DRUGS (1)
  1. NAPROXEN SODIUM [Suspect]
     Indication: BACK PAIN
     Dosage: 6 DF, UNK

REACTIONS (1)
  - ILEITIS [None]
